FAERS Safety Report 5671179-9 (Version None)
Quarter: 2008Q1

REPORT INFORMATION
  Report Type: 
  Country: None (occurrence: None)
  Receive Date: 20080317
  Receipt Date: 20080317
  Transmission Date: 20080703
  Serious: Yes (Hospitalization)
  Sender: FDA-Public Use
  Company Number: None

PATIENT
  Age: 74 Year
  Sex: Male
  Weight: 87.09 kg

DRUGS (1)
  1. TRIMETHOPRIM-SULFAMETHOXAZOLE [Suspect]
     Indication: INFECTION
     Dosage: 1600/320MG BID PO
     Route: 048
     Dates: start: 20071107, end: 20071213

REACTIONS (9)
  - ALANINE AMINOTRANSFERASE INCREASED [None]
  - ASPARTATE AMINOTRANSFERASE INCREASED [None]
  - BLOOD CREATININE INCREASED [None]
  - LIVER FUNCTION TEST NORMAL [None]
  - PLATELET COUNT DECREASED [None]
  - PRURITUS GENERALISED [None]
  - RASH [None]
  - RENAL FAILURE ACUTE [None]
  - THROMBOCYTOPENIA [None]
